FAERS Safety Report 7621601-3 (Version None)
Quarter: 2011Q3

REPORT INFORMATION
  Report Type: 
  Country: None (occurrence: None)
  Receive Date: 20110719
  Receipt Date: 20110711
  Transmission Date: 20111222
  Serious: Yes (Hospitalization, Other)
  Sender: FDA-Public Use
  Company Number: PHEH2007US03035

PATIENT
  Sex: Male

DRUGS (65)
  1. CHLORHEXIDINE GLUCONATE [Concomitant]
  2. DECADRON [Concomitant]
  3. VELCADE [Concomitant]
     Dosage: 2.7 MG, 21 DAY CYCLE
  4. ALTEPLASE [Concomitant]
  5. REMERON [Concomitant]
  6. CYMBALTA [Concomitant]
     Indication: DEPRESSION
  7. GABAPENTIN [Concomitant]
  8. DEXAMETHASONE [Concomitant]
  9. PENICILLIN ^GRUNENTHAL^ [Concomitant]
  10. VICODIN [Concomitant]
  11. XYLOCAINE [Concomitant]
     Indication: ORAL PAIN
  12. FLOVENT [Concomitant]
  13. AMBIEN [Concomitant]
  14. NORCO [Concomitant]
  15. PREDNISONE [Concomitant]
  16. NORTRIPTYLINE HCL [Concomitant]
  17. PRILOSEC [Concomitant]
  18. SPIRIVA [Concomitant]
  19. TETRACYCLINE [Concomitant]
     Dosage: 250 MG
     Route: 048
  20. DILAUDID [Concomitant]
  21. FIORICET [Concomitant]
  22. MEXILETINE HYDROCHLORIDE [Concomitant]
     Dosage: 150 MG, BID
  23. ALDACTAZINE [Concomitant]
     Indication: OEDEMA
  24. OXYGEN THERAPY [Concomitant]
  25. COMBIVENT [Concomitant]
  26. REGLAN [Concomitant]
  27. LOVENOX [Concomitant]
  28. KETOROLAC TROMETHAMINE [Concomitant]
  29. ZOMETA [Suspect]
     Indication: MULTIPLE MYELOMA
  30. ADVAIR DISKUS 100/50 [Concomitant]
  31. BUTALBITAL COMPOUND [Concomitant]
  32. METOPROLOL TARTRATE [Concomitant]
  33. PAXIL [Concomitant]
  34. PROCHLORPERAZINE TAB [Concomitant]
  35. ATIVAN [Concomitant]
  36. CHANTIX [Concomitant]
  37. DOCUSATE [Concomitant]
  38. TYLENOL-500 [Concomitant]
  39. ALBUTEROL SULFATE AUTOHALER [Concomitant]
  40. DIAZEPAM [Concomitant]
  41. LORAZEPAM [Concomitant]
  42. VALIUM [Concomitant]
     Dosage: 5 MG
  43. LYRICA [Concomitant]
     Dosage: 75 MG
  44. METOCLOPRAMIDE [Concomitant]
  45. MILK OF MAGNESIA TAB [Concomitant]
  46. DULCOLAX [Concomitant]
  47. WELLBUTRIN [Concomitant]
  48. AREDIA [Suspect]
     Indication: MULTIPLE MYELOMA
     Dosage: 90 MG, Q 3 MONTHS
  49. ACETAMINOPHEN AND HYDROCODONE BITARTRATE [Concomitant]
  50. NEXIUM [Concomitant]
     Dosage: 40 MG, DAILY
  51. HYDROMORPHONE HCL [Concomitant]
     Dosage: 4 MG
  52. ADVAIR DISKUS 100/50 [Concomitant]
  53. NEURONTIN [Concomitant]
  54. CLARITIN [Concomitant]
  55. FLAGYL [Concomitant]
  56. OXYCODONE HCL [Concomitant]
  57. PAMELOR [Concomitant]
  58. LACTULOSE [Concomitant]
  59. VENTOLIN HFA [Concomitant]
  60. COMPAZINE [Concomitant]
     Indication: NAUSEA
  61. PULMICORT [Concomitant]
  62. PIPERACILLIN AND TAZOBACTAM [Concomitant]
  63. EFFEXOR [Concomitant]
  64. SENNA [Concomitant]
  65. MULTI-VITAMINS [Concomitant]

REACTIONS (88)
  - EMPYEMA [None]
  - POLYNEUROPATHY [None]
  - THROMBOCYTOSIS [None]
  - CHRONIC OBSTRUCTIVE PULMONARY DISEASE [None]
  - HYPOPHAGIA [None]
  - HEPATIC CYST [None]
  - ENCEPHALOPATHY [None]
  - DEPRESSION [None]
  - GASTRIC HAEMORRHAGE [None]
  - SINUSITIS [None]
  - HYPOAESTHESIA [None]
  - WEIGHT DECREASED [None]
  - MUSCULOSKELETAL PAIN [None]
  - PLEURAL FIBROSIS [None]
  - EMOTIONAL DISTRESS [None]
  - ORAL PAIN [None]
  - DYSGEUSIA [None]
  - NAUSEA [None]
  - ATAXIA [None]
  - EYELID PTOSIS [None]
  - HYPERMETROPIA [None]
  - RALES [None]
  - SEPSIS [None]
  - OSTEONECROSIS OF JAW [None]
  - SWELLING FACE [None]
  - ARTHRITIS [None]
  - VERTIGO [None]
  - CATARACT [None]
  - ADRENAL INSUFFICIENCY [None]
  - VERTEBRAL FORAMINAL STENOSIS [None]
  - DECREASED INTEREST [None]
  - CEREBRAL ATROPHY [None]
  - BENIGN PROSTATIC HYPERPLASIA [None]
  - UPPER RESPIRATORY TRACT INFECTION [None]
  - BACK PAIN [None]
  - IMPAIRED HEALING [None]
  - TREMOR [None]
  - MENISCUS LESION [None]
  - ANGINA PECTORIS [None]
  - PRODUCTIVE COUGH [None]
  - ANAEMIA [None]
  - BACTERIAL DISEASE CARRIER [None]
  - NEUROPATHY PERIPHERAL [None]
  - BONE DISORDER [None]
  - ANXIETY [None]
  - DISCOMFORT [None]
  - HALLUCINATION [None]
  - DEAFNESS [None]
  - VOMITING [None]
  - MIGRAINE [None]
  - INSOMNIA [None]
  - ARTHRALGIA [None]
  - DYSPHAGIA [None]
  - ABDOMINAL PAIN [None]
  - PAIN [None]
  - LIFE EXPECTANCY SHORTENED [None]
  - SINUS TACHYCARDIA [None]
  - BONE EROSION [None]
  - OSTEOARTHRITIS [None]
  - TOOTHACHE [None]
  - ATELECTASIS [None]
  - EMPHYSEMA [None]
  - CORONARY ARTERY DISEASE [None]
  - ROTATOR CUFF SYNDROME [None]
  - HIATUS HERNIA [None]
  - CHEST DISCOMFORT [None]
  - HILAR LYMPHADENOPATHY [None]
  - WHEEZING [None]
  - SPINAL OSTEOARTHRITIS [None]
  - PNEUMONIA [None]
  - BONE LOSS [None]
  - PAIN IN JAW [None]
  - COLONIC POLYP [None]
  - DECREASED APPETITE [None]
  - CEREBRAL ISCHAEMIA [None]
  - STAPHYLOCOCCAL INFECTION [None]
  - PRIMARY SEQUESTRUM [None]
  - GENERAL PHYSICAL HEALTH DETERIORATION [None]
  - DEFORMITY [None]
  - SINUS DISORDER [None]
  - BRONCHITIS [None]
  - DYSPNOEA [None]
  - PLEURAL EFFUSION [None]
  - OEDEMA [None]
  - PAIN IN EXTREMITY [None]
  - EYE PAIN [None]
  - LIMB DISCOMFORT [None]
  - LUMBAR SPINAL STENOSIS [None]
